FAERS Safety Report 12756277 (Version 2)
Quarter: 2016Q4

REPORT INFORMATION
  Report Type: Spontaneous
  Country: GB (occurrence: GB)
  Receive Date: 20160916
  Receipt Date: 20161003
  Transmission Date: 20170207
  Serious: Yes (Other)
  Sender: FDA-Public Use
  Company Number: GB-009507513-1609GBR005666

PATIENT
  Sex: Female
  Weight: 100 kg

DRUGS (1)
  1. ESMERON [Suspect]
     Active Substance: ROCURONIUM BROMIDE
     Indication: ENDOTRACHEAL INTUBATION
     Dosage: 100 MG, ONCE

REACTIONS (3)
  - Drug effect prolonged [Unknown]
  - Hypothermia [Unknown]
  - Paralysis [Recovering/Resolving]
